FAERS Safety Report 10622022 (Version 3)
Quarter: 2015Q1

REPORT INFORMATION
  Report Type: Report from Study
  Country: US (occurrence: US)
  Receive Date: 20141203
  Receipt Date: 20150327
  Transmission Date: 20150720
  Serious: Yes (Death, Hospitalization, Other)
  Sender: FDA-Public Use
  Company Number: US-BAYER-2014-120889

PATIENT
  Age: 55 Year
  Sex: Female

DRUGS (7)
  1. STIVARGA [Suspect]
     Active Substance: REGORAFENIB
     Indication: COLON CANCER METASTATIC
     Dosage: 160 MG, DAILY
     Route: 048
     Dates: start: 20140716, end: 201407
  2. DILAUDID [Concomitant]
     Active Substance: HYDROMORPHONE HYDROCHLORIDE
     Dosage: UNK UNK, PRN
  3. METFORMIN [Concomitant]
     Active Substance: METFORMIN HYDROCHLORIDE
  4. ZOFRAN [Concomitant]
     Active Substance: ONDANSETRON HYDROCHLORIDE
     Dosage: UNK UNK, PRN
  5. ATIVAN [Concomitant]
     Active Substance: LORAZEPAM
     Dosage: UNK UNK, PRN
  6. COMPAZINE [Concomitant]
     Active Substance: PROCHLORPERAZINE MALEATE
     Dosage: UNK UNK, PRN
  7. CELEXA [Concomitant]
     Active Substance: CITALOPRAM HYDROBROMIDE

REACTIONS (8)
  - Disseminated intravascular coagulation [None]
  - Hepatic enzyme increased [None]
  - Respiratory failure [Fatal]
  - Colon cancer metastatic [None]
  - Hepatic encephalopathy [None]
  - Thrombocytopenia [None]
  - Hepatic failure [None]
  - Acute kidney injury [None]
